FAERS Safety Report 6425219-X (Version None)
Quarter: 2009Q4

REPORT INFORMATION
  Report Type: 
  Country: None (occurrence: None)
  Receive Date: 20091103
  Receipt Date: 20091023
  Transmission Date: 20100525
  Serious: Yes (Death)
  Sender: FDA-Public Use
  Company Number: CH-BRISTOL-MYERS SQUIBB COMPANY-14830731

PATIENT
  Age: 4 Year
  Sex: Female

DRUGS (1)
  1. AMPHOTERICIN B [Suspect]

REACTIONS (2)
  - AORTIC RUPTURE [None]
  - DRUG INEFFECTIVE [None]
